FAERS Safety Report 17115734 (Version 1)
Quarter: 2019Q4

REPORT INFORMATION
  Report Type: Spontaneous
  Country: AU (occurrence: AU)
  Receive Date: 20191205
  Receipt Date: 20191205
  Transmission Date: 20200122
  Serious: Yes (Death, Hospitalization, Other)
  Sender: FDA-Public Use
  Company Number: NVSC2019AU055387

PATIENT
  Sex: Male

DRUGS (1)
  1. AMIODARONE [Suspect]
     Active Substance: AMIODARONE
     Indication: ATRIAL FIBRILLATION
     Dosage: 100 UNK
     Route: 065
     Dates: start: 20140406

REACTIONS (25)
  - Feeling abnormal [Unknown]
  - Nausea [Recovered/Resolved]
  - Vision blurred [Recovered/Resolved]
  - Hyperhidrosis [Unknown]
  - Anxiety [Unknown]
  - Respiratory failure [Fatal]
  - Pulmonary toxicity [Fatal]
  - Loss of consciousness [Unknown]
  - Hypotension [Unknown]
  - Haemoptysis [Unknown]
  - Muscular weakness [Unknown]
  - Constipation [Unknown]
  - Depression [Unknown]
  - Tachycardia [Unknown]
  - Dysphagia [Unknown]
  - Diplopia [Unknown]
  - Intracranial aneurysm [Unknown]
  - Gait disturbance [Unknown]
  - Dizziness [Recovered/Resolved]
  - Dysmetria [Unknown]
  - Syncope [Unknown]
  - Haemorrhage [Unknown]
  - Pneumonia [Unknown]
  - Hyperlipidaemia [Unknown]
  - Vertigo [Unknown]
